FAERS Safety Report 6110589-2 (Version None)
Quarter: 2009Q1

REPORT INFORMATION
  Report Type: 
  Country: None (occurrence: None)
  Receive Date: 20090310
  Receipt Date: 20090305
  Transmission Date: 20090719
  Serious: Yes (Other)
  Sender: FDA-Public Use
  Company Number: GB-ALLERGAN-0900979US

PATIENT
  Sex: Male
  Weight: 74 kg

DRUGS (8)
  1. LUMIGAN [Suspect]
     Indication: INTRAOCULAR PRESSURE INCREASED
     Dosage: 1 GTT, BID
     Route: 047
     Dates: start: 20080101, end: 20090202
  2. REXOL [Concomitant]
  3. BETA BLOCKING AGENTS [Concomitant]
  4. COSOPT [Concomitant]
     Indication: INTRAOCULAR PRESSURE INCREASED
     Route: 047
  5. NASONEX [Concomitant]
     Indication: NASAL CONGESTION
     Dosage: 2 PUFFS, QD
     Route: 045
  6. NASONEX [Concomitant]
     Indication: RHINORRHOEA
  7. AMLODIPINE [Concomitant]
     Indication: HYPERTENSION
     Dosage: 5 MG, QD
  8. PERINDOPRIL ERBUMINE [Concomitant]
     Indication: HYPERTENSION
     Dosage: 4 MG, QD

REACTIONS (4)
  - CONJUNCTIVITIS [None]
  - OCULAR HYPERAEMIA [None]
  - SCLERITIS [None]
  - ULCERATIVE KERATITIS [None]
